FAERS Safety Report 9453136 (Version 2)
Quarter: 2013Q3

REPORT INFORMATION
  Report Type: Report from Study
  Country: BR (occurrence: BR)
  Receive Date: 20130812
  Receipt Date: 20130822
  Transmission Date: 20140515
  Serious: Yes (Hospitalization, Other)
  Sender: FDA-Public Use
  Company Number: PHHY2013BR085773

PATIENT
  Age: 31 Year
  Sex: Male
  Weight: 65 kg

DRUGS (7)
  1. MYCOPHENOLIC ACID [Suspect]
     Indication: IMMUNOSUPPRESSION
     Dosage: 360 MG, 12/12 HOURS
     Route: 048
     Dates: start: 20110211
  2. EVEROLIMUS [Suspect]
     Indication: IMMUNOSUPPRESSION
     Dosage: 0.5 MG, 12/12 HOURS
     Route: 048
     Dates: start: 20110502
  3. TACROLIMUS [Suspect]
     Indication: IMMUNOSUPPRESSION
     Dosage: 3 MG, 12/12 HOURS
     Route: 048
     Dates: start: 20110211, end: 20110220
  4. PREDNISONE [Suspect]
     Indication: IMMUNOSUPPRESSION
     Dosage: 7.5 MG, DAILY
     Route: 048
     Dates: start: 20110211
  5. OMEPRAZOLE [Concomitant]
     Indication: GASTRIC DISORDER
     Dosage: 20 MG, 12/ 12 HOURS
     Route: 048
     Dates: start: 201005
  6. CARVEDILOL [Concomitant]
     Indication: HYPOTENSION
     Dosage: 25 MG, 12/ 12 HOURS
     Route: 048
     Dates: start: 201110
  7. LOSARTAN [Concomitant]
     Indication: HYPOTENSION
     Dosage: 50 MG / DAY
     Route: 048
     Dates: start: 201104

REACTIONS (8)
  - Complications of transplanted kidney [Recovered/Resolved]
  - Thrombotic microangiopathy [Recovered/Resolved]
  - Cytomegalovirus infection [Recovered/Resolved]
  - Kidney transplant rejection [Recovered/Resolved]
  - Renal tubular atrophy [Unknown]
  - Kidney fibrosis [Recovered/Resolved]
  - Proteinuria [Unknown]
  - Blood creatinine increased [Unknown]
